FAERS Safety Report 14331495 (Version 3)
Quarter: 2018Q1

REPORT INFORMATION
  Report Type: Spontaneous
  Country: HR (occurrence: HR)
  Receive Date: 20171228
  Receipt Date: 20180308
  Transmission Date: 20180509
  Serious: Yes (Other)
  Sender: FDA-Public Use
  Company Number: HR-UCBSA-2017052659

PATIENT
  Age: 8 Year
  Sex: Female

DRUGS (1)
  1. XYZAL [Suspect]
     Active Substance: LEVOCETIRIZINE DIHYDROCHLORIDE
     Indication: BRONCHITIS
     Dosage: 1 DF DAILY
     Route: 048
     Dates: start: 20171121

REACTIONS (2)
  - Urinary retention [Unknown]
  - Anuria [Unknown]

NARRATIVE: CASE EVENT DATE: 20171122
